FAERS Safety Report 19361930 (Version 1)
Quarter: 2021Q2

REPORT INFORMATION
  Report Type: Spontaneous
  Country: CZ (occurrence: CZ)
  Receive Date: 20210603
  Receipt Date: 20210603
  Transmission Date: 20210717
  Serious: Yes (Hospitalization, Other)
  Sender: FDA-Public Use
  Company Number: CZ-AMGEN-CZESP2021082059

PATIENT
  Age: 33 Year
  Sex: Female

DRUGS (2)
  1. FUROSEMIDE. [Concomitant]
     Active Substance: FUROSEMIDE
     Dosage: 5 MILLIGRAM, QH
  2. MIMPARA [Suspect]
     Active Substance: CINACALCET HYDROCHLORIDE
     Indication: HYPERCALCAEMIA
     Dosage: 90 MILLIGRAM, QD
     Route: 065

REACTIONS (6)
  - Caesarean section [Unknown]
  - Exposure during pregnancy [Unknown]
  - Premature delivery [Unknown]
  - Premature separation of placenta [Unknown]
  - Parathyroid tumour benign [Unknown]
  - Hypocalcaemia [Recovered/Resolved]
